FAERS Safety Report 7988805-1 (Version None)
Quarter: 2011Q4

REPORT INFORMATION
  Report Type: 
  Country: None (occurrence: None)
  Receive Date: 20111219
  Receipt Date: 20111215
  Transmission Date: 20120403
  Serious: No
  Sender: FDA-Public Use
  Company Number: US-BIOGENIDEC-2011BI047583

PATIENT
  Sex: Female

DRUGS (2)
  1. EXELON [Concomitant]
     Indication: DEMENTIA
  2. AVONEX [Suspect]
     Indication: MULTIPLE SCLEROSIS
     Route: 030
     Dates: start: 20060403

REACTIONS (4)
  - DEMENTIA ALZHEIMER'S TYPE [None]
  - PARKINSON'S DISEASE [None]
  - BIPOLAR DISORDER [None]
  - MUSCLE SPASMS [None]
